FAERS Safety Report 6870178-9 (Version None)
Quarter: 2010Q3

REPORT INFORMATION
  Report Type: 
  Country: None (occurrence: None)
  Receive Date: 20100723
  Receipt Date: 20100715
  Transmission Date: 20110219
  Serious: Yes (Hospitalization)
  Sender: FDA-Public Use
  Company Number: US-SHIRE-SPV1-2010-01274

PATIENT

DRUGS (1)
  1. VYVANSE [Suspect]
     Indication: ATTENTION DEFICIT/HYPERACTIVITY DISORDER
     Dosage: 70 MG, 1X/DAY:QD
     Route: 048
     Dates: end: 20100701

REACTIONS (4)
  - DERMATITIS EXFOLIATIVE [None]
  - DYSPNOEA [None]
  - LARYNGEAL OEDEMA [None]
  - PRURITUS [None]
